FAERS Safety Report 9304079 (Version 2)
Quarter: 2013Q2

REPORT INFORMATION
  Report Type: Report from Study
  Country: GB (occurrence: GB)
  Receive Date: 20130522
  Receipt Date: 20130522
  Transmission Date: 20140414
  Serious: Yes (Hospitalization)
  Sender: FDA-Public Use
  Company Number: GB-NAPPMUNDI-GBR-2012-0012001

PATIENT
  Age: 66 Year
  Sex: Male

DRUGS (11)
  1. MST CONTINUS TABLETS 100 MG [Suspect]
     Indication: PRODUCT USED FOR UNKNOWN INDICATION
     Dosage: 100 MG, DAILY
     Route: 048
     Dates: start: 20121001
  2. CISPLATIN [Suspect]
     Dosage: 135 MG, UNK
     Route: 042
     Dates: start: 20120926, end: 20121121
  3. GEMCITABINE [Suspect]
     Indication: PRODUCT USED FOR UNKNOWN INDICATION
     Dosage: UNK
     Route: 065
     Dates: start: 20120926, end: 20121108
  4. ORAMORPH [Suspect]
     Indication: PRODUCT USED FOR UNKNOWN INDICATION
     Dosage: UNK, PRN
     Route: 048
     Dates: start: 20120918
  5. SUNITINIB MALATE [Suspect]
     Indication: TRANSITIONAL CELL CARCINOMA
     Dosage: 25 MG, UNK
     Dates: start: 20120927, end: 20120929
  6. DULCOLAX                           /00064401/ [Concomitant]
     Dosage: 2 TABLET, DAILY
     Route: 048
     Dates: start: 201206
  7. METOCLOPRAMIDE [Concomitant]
     Dosage: 1 DF, DAILY
     Route: 048
     Dates: start: 20120921
  8. MOVICOL                            /01625101/ [Concomitant]
     Dosage: UNK UNK, DAILY
     Route: 048
     Dates: start: 20121010
  9. PARACETAMOL [Concomitant]
     Dosage: 4 GRAM, DAILY
     Route: 048
     Dates: start: 201206
  10. PREDNISOLONE [Concomitant]
     Dosage: 7.5 MG, DAILY
     Route: 048
     Dates: start: 201009
  11. TAMSULOSIN [Concomitant]
     Dosage: 400 MG, DAILY
     Route: 048
     Dates: start: 20120401

REACTIONS (3)
  - Deep vein thrombosis [Not Recovered/Not Resolved]
  - Nausea [Not Recovered/Not Resolved]
  - Vomiting [Recovered/Resolved]
